FAERS Safety Report 8811219 (Version 2)
Quarter: 2012Q4

REPORT INFORMATION
  Report Type: 
  Country: US (occurrence: US)
  Receive Date: 20120927
  Receipt Date: 20121004
  Transmission Date: 20130627
  Serious: Yes (Death, Hospitalization, Other)
  Sender: FDA-Public Use
  Company Number: PHEH2012US018775

PATIENT
  Age: 75 Year
  Sex: Male
  Weight: 79.82 kg

DRUGS (6)
  1. AFINITOR [Suspect]
     Indication: METASTATIC RENAL CELL CARCINOMA
     Route: 048
  2. VALPROIC ACID [Concomitant]
  3. CRESTOR [Concomitant]
  4. TAMLOSTAR [Concomitant]
  5. NEXIUM [Concomitant]
  6. METFORMIN [Concomitant]

REACTIONS (20)
  - Death [Fatal]
  - Haematuria [Recovering/Resolving]
  - Eastern Cooperative Oncology Group performance status worsened [Not Recovered/Not Resolved]
  - Urinary tract infection [Unknown]
  - Syncope [Unknown]
  - Fall [Unknown]
  - Contusion [Unknown]
  - Joint stiffness [Unknown]
  - Muscular weakness [Unknown]
  - Oropharyngeal discomfort [Unknown]
  - Blood count abnormal [Unknown]
  - Blood pressure decreased [Unknown]
  - Gait disturbance [Unknown]
  - Malaise [Unknown]
  - Asthenia [Unknown]
  - Fatigue [Unknown]
  - Decreased appetite [Unknown]
  - Anaemia [Unknown]
  - Blood alkaline phosphatase increased [Unknown]
  - Alanine aminotransferase increased [Unknown]
